FAERS Safety Report 8152714-8 (Version None)
Quarter: 2012Q1

REPORT INFORMATION
  Report Type: 
  Country: None (occurrence: None)
  Receive Date: 20120103
  Receipt Date: 20111005
  Transmission Date: 20120608
  Serious: No
  Sender: FDA-Public Use
  Company Number: AE-2011-002083

PATIENT
  Age: 59 Year
  Sex: Female
  Weight: 73.0291 kg

DRUGS (8)
  1. RIBAVIRIN [Concomitant]
  2. PEGASYS [Concomitant]
  3. INCIVEK [Suspect]
     Dosage: 2250 MG (750 MG, 3 IN 1 D), ORAL
     Route: 048
     Dates: start: 20111004
  4. ZOLOFT [Concomitant]
  5. COENZYME Q10 [Concomitant]
  6. ACTONEL [Concomitant]
  7. PROBIOTIC WITH LYSINE(LYSINE) [Concomitant]
  8. LISINOPRIL [Concomitant]

REACTIONS (2)
  - RASH ERYTHEMATOUS [None]
  - PRURITUS [None]
